FAERS Safety Report 11383870 (Version 2)
Quarter: 2015Q3

REPORT INFORMATION
  Report Type: Spontaneous
  Country: GB (occurrence: GB)
  Receive Date: 20150814
  Receipt Date: 20150818
  Transmission Date: 20151125
  Serious: Yes (Other)
  Sender: FDA-Public Use
  Company Number: GB-JNJFOC-20150805203

PATIENT
  Sex: Male

DRUGS (4)
  1. ALPECIN CAFFEINE SHAMPOO [Suspect]
     Active Substance: CAFFEINE
     Indication: PRODUCT USED FOR UNKNOWN INDICATION
     Route: 065
  2. REGAINE EXTRA STRENGTH-MENS (5%) [Suspect]
     Active Substance: MINOXIDIL
     Indication: ALOPECIA
     Dosage: USING IT FOR APPROXIMATELY 3.5 YEARS
     Route: 061
     Dates: start: 2009
  3. PROPRANOLOL [Concomitant]
     Active Substance: PROPRANOLOL\PROPRANOLOL HYDROCHLORIDE
     Indication: PRODUCT USED FOR UNKNOWN INDICATION
     Route: 048
     Dates: start: 2010, end: 2011
  4. REGAINE EXTRA STRENGTH-MENS (5%) [Suspect]
     Active Substance: MINOXIDIL
     Indication: ALOPECIA
     Route: 061
     Dates: start: 2011

REACTIONS (13)
  - Disability [Unknown]
  - Anxiety [Unknown]
  - Product physical issue [Unknown]
  - Tunnel vision [Unknown]
  - Dysphagia [Unknown]
  - Insomnia [Unknown]
  - Dizziness [Unknown]
  - Panic attack [Unknown]
  - Sensation of blood flow [Unknown]
  - Wrong technique in product usage process [Unknown]
  - Depression [Unknown]
  - Body temperature decreased [Unknown]
  - Hair growth abnormal [Unknown]
